FAERS Safety Report 17178429 (Version 18)
Quarter: 2021Q2

REPORT INFORMATION
  Report Type: Report from Study
  Country: GB (occurrence: GB)
  Receive Date: 20191219
  Receipt Date: 20210526
  Transmission Date: 20210716
  Serious: Yes (Hospitalization, Other)
  Sender: FDA-Public Use
  Company Number: GB-TAKEDA-2019TUS072085

PATIENT
  Age: 73 Year
  Sex: Male

DRUGS (55)
  1. DEXAMETHASONE. [Suspect]
     Active Substance: DEXAMETHASONE
     Dosage: 20 MILLIGRAM, 1/WEEK
     Route: 048
     Dates: start: 20191213, end: 20191228
  2. REVLIMID [Suspect]
     Active Substance: LENALIDOMIDE
     Dosage: 25 MILLIGRAM, QD
     Route: 048
     Dates: start: 20180917, end: 20181007
  3. REVLIMID [Suspect]
     Active Substance: LENALIDOMIDE
     Dosage: 25 MILLIGRAM, QD
     Route: 048
     Dates: start: 20191210
  4. TINZAPARIN [Concomitant]
     Active Substance: TINZAPARIN
     Indication: PROPHYLAXIS
     Dosage: 10000 INTERNATIONAL UNIT, QD
     Route: 058
     Dates: start: 20190110
  5. DEXAMETHASONE. [Suspect]
     Active Substance: DEXAMETHASONE
     Dosage: 20 MILLIGRAM, 1/WEEK
     Route: 048
     Dates: start: 20190614, end: 20190830
  6. REVLIMID [Suspect]
     Active Substance: LENALIDOMIDE
     Dosage: 25 MILLIGRAM, QD
     Route: 048
     Dates: start: 20181210, end: 20181231
  7. METOPROLOL. [Concomitant]
     Active Substance: METOPROLOL
     Indication: HYPERTENSION
     Dosage: 25 MILLIGRAM, BID
     Route: 048
  8. SCANDISHAKE MIX [Concomitant]
     Active Substance: DIETARY SUPPLEMENT
     Indication: MALNUTRITION
     Dosage: UNK UNK, QD
     Route: 048
     Dates: start: 20190102, end: 20191029
  9. AMLODIPINE [Concomitant]
     Active Substance: AMLODIPINE BESYLATE
     Indication: HYPERTENSION
     Dosage: 10 MILLIGRAM, QD
     Route: 065
     Dates: start: 20191204
  10. ZOLEDRONIC ACID [Concomitant]
     Active Substance: ZOLEDRONIC ACID
     Indication: PROPHYLAXIS
     Dosage: 4 MILLIGRAM, MONTHLY
     Route: 041
     Dates: start: 20181106
  11. VITAMIN D NOS [Concomitant]
     Active Substance: VITAMIN D NOS
     Indication: MALNUTRITION
     Dosage: UNK UNK, BID
     Route: 065
     Dates: start: 20190103, end: 20191011
  12. IXAZOMIB [Suspect]
     Active Substance: IXAZOMIB
     Dosage: 4 MILLIGRAM, 1/WEEK
     Route: 048
     Dates: start: 20190629, end: 20190713
  13. IXAZOMIB [Suspect]
     Active Substance: IXAZOMIB
     Dosage: 4 MILLIGRAM, 1/WEEK
     Route: 048
     Dates: start: 20190810, end: 20190824
  14. CYCLOPHOSPHAMIDE. [Suspect]
     Active Substance: CYCLOPHOSPHAMIDE
     Indication: PLASMA CELL MYELOMA
     Dosage: 300 MILLIGRAM
     Route: 048
     Dates: start: 20190907, end: 20191010
  15. CALCICHEW D3 [Concomitant]
     Active Substance: CALCIUM\CHOLECALCIFEROL
     Indication: PROPHYLAXIS
     Dosage: UNK
     Route: 048
     Dates: start: 20190103, end: 20190211
  16. BUDESONIDE. [Concomitant]
     Active Substance: BUDESONIDE
     Indication: CHRONIC OBSTRUCTIVE PULMONARY DISEASE
     Dosage: 1 MILLIGRAM, QD
     Route: 048
     Dates: start: 20200107
  17. IXAZOMIB [Suspect]
     Active Substance: IXAZOMIB
     Dosage: 4 MILLIGRAM, 1/WEEK
     Route: 048
     Dates: start: 20190620, end: 20190802
  18. DEXAMETHASONE. [Suspect]
     Active Substance: DEXAMETHASONE
     Dosage: 20 MILLIGRAM, 1/WEEK
     Route: 048
     Dates: start: 20190906, end: 20191228
  19. ALTRAPLEN PROTEIN [Concomitant]
     Indication: MALNUTRITION
     Dosage: UNK, QD
     Route: 048
     Dates: start: 20191117
  20. ZOLPIDEM [Concomitant]
     Active Substance: ZOLPIDEM TARTRATE
     Indication: PROPHYLAXIS
     Dosage: 10 MILLIGRAM
     Route: 048
     Dates: start: 20180816, end: 20191029
  21. VITAMINS WITH MINERALS [Concomitant]
     Active Substance: MINERALS\VITAMINS
     Indication: PROPHYLAXIS
     Dosage: UNK, QD
     Route: 048
     Dates: start: 20190104
  22. IXAZOMIB [Suspect]
     Active Substance: IXAZOMIB
     Dosage: 4 MILLIGRAM, 1/WEEK
     Route: 048
     Dates: start: 20190615, end: 20190622
  23. REVLIMID [Suspect]
     Active Substance: LENALIDOMIDE
     Dosage: 25 MILLIGRAM, QD
     Route: 048
     Dates: start: 20190712, end: 20190801
  24. REVLIMID [Suspect]
     Active Substance: LENALIDOMIDE
     Dosage: 25 MILLIGRAM, QD
     Route: 048
     Dates: start: 20190809, end: 20190829
  25. REVLIMID [Suspect]
     Active Substance: LENALIDOMIDE
     Dosage: 25 MILLIGRAM, QD
     Route: 048
     Dates: start: 20191112, end: 20191202
  26. REVLIMID [Suspect]
     Active Substance: LENALIDOMIDE
     Dosage: 25 MILLIGRAM, QD
     Route: 048
     Dates: start: 20191213, end: 20191231
  27. CYCLOPHOSPHAMIDE. [Suspect]
     Active Substance: CYCLOPHOSPHAMIDE
     Dosage: 4 MILLIGRAM, 1/WEEK
     Route: 048
     Dates: start: 20191213, end: 20191226
  28. MEGACE [Concomitant]
     Active Substance: MEGESTROL ACETATE
     Indication: MALNUTRITION
     Dosage: 15 MILLILITER, QD
     Route: 048
     Dates: start: 20191011
  29. CHLORHEXIDINE [Concomitant]
     Active Substance: CHLORHEXIDINE
     Dosage: 30 MILLILITER, QD
     Route: 048
     Dates: start: 20191116, end: 20191220
  30. FOLIC ACID. [Concomitant]
     Active Substance: FOLIC ACID
     Indication: ANAEMIA
     Dosage: 5 MILLIGRAM, QD
     Route: 048
  31. DEXAMETHASONE. [Suspect]
     Active Substance: DEXAMETHASONE
     Indication: PLASMA CELL MYELOMA
     Dosage: 20 MILLIGRAM, 1/WEEK
     Route: 048
     Dates: start: 20180821, end: 20190101
  32. REVLIMID [Suspect]
     Active Substance: LENALIDOMIDE
     Dosage: 25 MILLIGRAM, QD
     Route: 048
     Dates: start: 20181112, end: 20181202
  33. CYCLOPHOSPHAMIDE. [Suspect]
     Active Substance: CYCLOPHOSPHAMIDE
     Dosage: 300 MILLIGRAM, 1/WEEK
     Route: 048
     Dates: start: 20191213, end: 20191228
  34. DECAPEPTYL (ACETATE) [Concomitant]
     Active Substance: TRIPTORELIN ACETATE
     Indication: PROSTATE CANCER
     Dosage: 11.25 MILLIGRAM
     Route: 065
     Dates: start: 20190515
  35. SEPTRIN LIQUID [Concomitant]
     Indication: PROPHYLAXIS
     Dosage: 10 MILLILITER
     Route: 048
     Dates: start: 20191011
  36. CALCICHEW D3 [Concomitant]
     Active Substance: CALCIUM\CHOLECALCIFEROL
     Dosage: UNK
     Route: 048
     Dates: start: 20190212, end: 20191015
  37. CALCICHEW D3 [Concomitant]
     Active Substance: CALCIUM\CHOLECALCIFEROL
     Dosage: UNK
     Route: 048
     Dates: start: 20191016, end: 20191029
  38. ASPIRIN                            /00002701/ [Concomitant]
     Active Substance: ASPIRIN
     Indication: PROPHYLAXIS
     Dosage: 75 MILLIGRAM, QD
     Route: 048
  39. CHLORHEXIDINE MOUTH WASH [Concomitant]
  40. IXAZOMIB [Suspect]
     Active Substance: IXAZOMIB
     Indication: PLASMA CELL MYELOMA
     Dosage: 4 MILLIGRAM, 1/WEEK
     Route: 048
     Dates: start: 20190615, end: 20190615
  41. REVLIMID [Suspect]
     Active Substance: LENALIDOMIDE
     Indication: PLASMA CELL MYELOMA
     Dosage: 25 MILLIGRAM, QD
     Route: 048
     Dates: start: 20180821, end: 20180909
  42. REVLIMID [Suspect]
     Active Substance: LENALIDOMIDE
     Dosage: 25 MILLIGRAM, QD
     Route: 048
     Dates: start: 20181015, end: 20181104
  43. REVLIMID [Suspect]
     Active Substance: LENALIDOMIDE
     Dosage: 25 MILLIGRAM, QD
     Route: 048
     Dates: start: 20190614, end: 20190704
  44. REVLIMID [Suspect]
     Active Substance: LENALIDOMIDE
     Dosage: 25 MILLIGRAM, QD
     Route: 048
     Dates: start: 20190906, end: 20191010
  45. METOPROLOL. [Concomitant]
     Active Substance: METOPROLOL
     Dosage: 50 MILLIGRAM, QD
     Route: 048
  46. PANTOPRAZOLE [Concomitant]
     Active Substance: PANTOPRAZOLE
     Dosage: 80 MILLIGRAM, QD
     Route: 048
     Dates: start: 20191016
  47. COTRIMOXAZOLE [Concomitant]
     Active Substance: SULFAMETHOXAZOLE\TRIMETHOPRIM
     Indication: ANTIFUNGAL PROPHYLAXIS
     Dosage: 480 MILLIGRAM, QD
     Route: 048
     Dates: start: 20180817, end: 20191015
  48. MYCOSTATIN [Concomitant]
     Active Substance: NYSTATIN
     Dosage: 3 MILLILITER, QD
     Route: 048
     Dates: start: 20191116, end: 20191220
  49. IXAZOMIB [Suspect]
     Active Substance: IXAZOMIB
     Dosage: 4 MILLIGRAM, 1/WEEK
     Route: 048
     Dates: start: 20190803, end: 20190809
  50. IXAZOMIB [Suspect]
     Active Substance: IXAZOMIB
     Dosage: 4 MILLIGRAM, 1/WEEK
     Route: 048
     Dates: start: 20191213, end: 20191226
  51. PANTOPRAZOLE [Concomitant]
     Active Substance: PANTOPRAZOLE
     Indication: PROPHYLAXIS
     Dosage: 20 MILLIGRAM, QD
     Route: 048
     Dates: start: 20190102, end: 20191015
  52. INFLUENZA VACCINE [Concomitant]
     Active Substance: INFLUENZA VIRUS VACCINE
     Indication: PROPHYLAXIS
     Dosage: UNK
     Route: 065
     Dates: start: 20191112, end: 20191112
  53. VALACICLOVIR [Concomitant]
     Active Substance: VALACYCLOVIR HYDROCHLORIDE
     Indication: PROPHYLAXIS
     Dosage: 500 MILLIGRAM, QD
     Route: 048
     Dates: start: 20190817
  54. FORTISIP [Concomitant]
     Active Substance: CARBOHYDRATES\FATTY ACIDS\MINERALS\PROTEIN\VITAMINS
     Indication: MALNUTRITION
     Dosage: UNK UNK, QD
     Route: 048
     Dates: start: 20190103, end: 20191011
  55. PROCAL SHOT [Concomitant]
     Indication: MALNUTRITION
     Dosage: 90 MILLILITER, QD
     Route: 048
     Dates: start: 20190103

REACTIONS (3)
  - Respiratory tract infection bacterial [Recovered/Resolved]
  - Respiratory tract infection [Recovered/Resolved]
  - Thrombocytopenia [Recovered/Resolved]

NARRATIVE: CASE EVENT DATE: 20191002
